FAERS Safety Report 4539982-6 (Version None)
Quarter: 2004Q4

REPORT INFORMATION
  Report Type: 
  Country: None (occurrence: None)
  Receive Date: 20041223
  Receipt Date: 20041215
  Transmission Date: 20050328
  Serious: Yes (Death)
  Sender: FDA-Public Use
  Company Number: 200413351GDS

PATIENT
  Age: 88 Year
  Sex: Male
  Weight: 60 kg

DRUGS (4)
  1. AVELOX [Suspect]
     Indication: LUNG INFILTRATION
  2. CIPROFLOXACIN [Suspect]
     Indication: LUNG INFILTRATION
     Dosage: 800 MG, TOTAL DAILY, INTRAVENOUS
     Route: 042
     Dates: start: 20041005, end: 20041009
  3. PERFUSALGAN [Concomitant]
  4. NOOTROPIL [Concomitant]

REACTIONS (4)
  - ARRHYTHMIA [None]
  - PULMONARY EMBOLISM [None]
  - SUDDEN DEATH [None]
  - VENTRICULAR EXTRASYSTOLES [None]
